FAERS Safety Report 21014637 (Version 1)
Quarter: 2022Q2

REPORT INFORMATION
  Report Type: Spontaneous
  Country: GR (occurrence: GR)
  Receive Date: 20220628
  Receipt Date: 20220628
  Transmission Date: 20220720
  Serious: Yes (Other)
  Sender: FDA-Public Use
  Company Number: GR-CELLTRION INC.-2022GR009997

PATIENT

DRUGS (7)
  1. RITUXIMAB [Suspect]
     Active Substance: RITUXIMAB
     Indication: B-cell lymphoma
     Dosage: 375 MG/M2 (DAY 1 FOR 6 CYCLES)
     Route: 042
  2. ETOPOSIDE [Suspect]
     Active Substance: ETOPOSIDE
     Indication: B-cell lymphoma
     Dosage: 50 MG/M2; DAY1-4 FOR 6 CYCLES
     Route: 042
  3. VINCRISTINE [Suspect]
     Active Substance: VINCRISTINE
     Indication: B-cell lymphoma
     Dosage: 0.4 MG/M2; DAY1-4 FOR 1 CYCLE
     Route: 042
  4. CYCLOPHOSPHAMIDE [Suspect]
     Active Substance: CYCLOPHOSPHAMIDE
     Indication: B-cell lymphoma
     Dosage: 480 MG/M2; DAY 5 FOR 6 CYCLES
     Route: 042
  5. DOXORUBICIN [Suspect]
     Active Substance: DOXORUBICIN
     Indication: B-cell lymphoma
     Dosage: 10 MG/M2; DAY1-4 FOR 6 CYCLES
     Route: 042
  6. PREDNISOLONE [Concomitant]
     Active Substance: PREDNISOLONE
     Dosage: 60 MG/M2; DAY1-5 FOR 6 CYCLES
     Route: 042
  7. FILGRASTIM [Concomitant]
     Active Substance: FILGRASTIM
     Indication: Neutrophil count decreased
     Dosage: DAY 6 UNTIL NEUTROPHIL COUNT}1500/?L.
     Route: 058

REACTIONS (4)
  - Ileus paralytic [Recovered/Resolved]
  - Bile duct stone [Recovered/Resolved]
  - Neurotoxicity [Recovered/Resolved]
  - Intentional product use issue [Unknown]
